FAERS Safety Report 16196545 (Version 1)
Quarter: 2019Q2

REPORT INFORMATION
  Report Type: Spontaneous
  Country: HU (occurrence: HU)
  Receive Date: 20190415
  Receipt Date: 20190415
  Transmission Date: 20190711
  Serious: Yes (Hospitalization)
  Sender: FDA-Public Use
  Company Number: HU-ROCHE-2298955

PATIENT
  Age: 67 Year
  Sex: Female

DRUGS (5)
  1. FRONTIN [Concomitant]
     Active Substance: ALPRAZOLAM
     Route: 048
  2. ZELBORAF [Suspect]
     Active Substance: VEMURAFENIB
     Indication: METASTATIC MALIGNANT MELANOMA
     Route: 048
     Dates: start: 20180921, end: 2018
  3. APO-FAMOTIDIN [Concomitant]
     Route: 048
  4. COTELLIC [Suspect]
     Active Substance: COBIMETINIB
     Indication: METASTATIC MALIGNANT MELANOMA
     Dosage: ONE CYCLE: 20 MG THREE TIMES DAILY FOR THREE WEEKS, FOLLOWED BY ONE WEEK PAUSE
     Route: 048
     Dates: start: 20180926, end: 2018
  5. DALNESSA [Concomitant]
     Indication: HYPERTENSION
     Route: 048

REACTIONS (7)
  - Neutropenia [Recovered/Resolved]
  - Hypotension [Recovering/Resolving]
  - Pyrexia [Recovered/Resolved]
  - Hypokalaemia [Recovered/Resolved]
  - Rash [Recovering/Resolving]
  - Renal impairment [Recovering/Resolving]
  - Anaemia [Recovering/Resolving]

NARRATIVE: CASE EVENT DATE: 20180926
